FAERS Safety Report 18214060 (Version 4)
Quarter: 2020Q3

REPORT INFORMATION
  Report Type: Spontaneous
  Country: DE (occurrence: IT)
  Receive Date: 20200831
  Receipt Date: 20200915
  Transmission Date: 20201103
  Serious: No
  Sender: FDA-Public Use
  Company Number: IT-SA-2020SA225467

PATIENT

DRUGS (2)
  1. APIDRA SOLOSTAR [Suspect]
     Active Substance: INSULIN GLULISINE
     Dosage: UNK
     Route: 065
  2. TOUJEO [Suspect]
     Active Substance: INSULIN GLARGINE
     Dosage: UNK
     Route: 065

REACTIONS (1)
  - Product storage error [Unknown]
